FAERS Safety Report 14586262 (Version 1)
Quarter: 2018Q1

REPORT INFORMATION
  Report Type: Spontaneous
  Country: CN (occurrence: CN)
  Receive Date: 20180301
  Receipt Date: 20180301
  Transmission Date: 20180509
  Serious: Yes (Hospitalization)
  Sender: FDA-Public Use
  Company Number: CN-NOVAST LABORATORIES, LTD-CN-2018NOV000116

PATIENT
  Age: 71 Year
  Sex: Female

DRUGS (2)
  1. CLOPIDOGREL [Suspect]
     Active Substance: CLOPIDOGREL BISULFATE
     Indication: TRANSIENT ISCHAEMIC ATTACK
     Dosage: 75 MG, QD
  2. CARISOPRODOL\ASPIRIN [Suspect]
     Active Substance: ASPIRIN\CARISOPRODOL
     Indication: TRANSIENT ISCHAEMIC ATTACK
     Dosage: 100 MG, QD

REACTIONS (1)
  - Spinal epidural haematoma [Unknown]
